FAERS Safety Report 12351575 (Version 2)
Quarter: 2017Q1

REPORT INFORMATION
  Report Type: Report from Study
  Country: CZ (occurrence: CZ)
  Receive Date: 20160510
  Receipt Date: 20170210
  Transmission Date: 20170428
  Serious: Yes (Other)
  Sender: FDA-Public Use
  Company Number: CZ-MYLANLABS-2016M1019375

PATIENT

DRUGS (5)
  1. OXALIPLATIN. [Suspect]
     Active Substance: OXALIPLATIN
     Indication: PANCREATIC CARCINOMA METASTATIC
     Dosage: 85MG/M2 ON DAY 1, WITH 25% DOSE REDUCTION.
     Route: 042
  2. FLUOROURACIL. [Suspect]
     Active Substance: FLUOROURACIL
     Indication: PANCREATIC CARCINOMA METASTATIC
     Dosage: 400 MG/M2 ON DAY 1, WITH 25% DOSE REDUCTION.
     Route: 040
  3. FOLIC ACID. [Suspect]
     Active Substance: FOLIC ACID
     Indication: PANCREATIC CARCINOMA METASTATIC
     Dosage: 400 MG/M2 ON DAY 1, WITH 25% DOSE REDUCTION.
     Route: 042
  4. IRINOTECAN [Suspect]
     Active Substance: IRINOTECAN
     Indication: PANCREATIC CARCINOMA METASTATIC
     Dosage: 180 MG/M2 ON DAY 1, WITH 25% DOSE REDUCTION.
     Route: 042
  5. FLUOROURACIL. [Suspect]
     Active Substance: FLUOROURACIL
     Dosage: 2,400 MG/M2 ON DAY 1, 46 HOURS CONTINUOUSLY FOR 14 DAYS, WITH 25% DOSE REDUCTION.
     Route: 040

REACTIONS (3)
  - Peritonitis [Unknown]
  - Septic shock [Unknown]
  - Sepsis [Unknown]
